FAERS Safety Report 7747772-6 (Version None)
Quarter: 2011Q3

REPORT INFORMATION
  Report Type: 
  Country: None (occurrence: None)
  Receive Date: 20110913
  Receipt Date: 20110902
  Transmission Date: 20111222
  Serious: Yes (Hospitalization, Other)
  Sender: FDA-Public Use
  Company Number: US-ACTELION-A-US2011-53452

PATIENT

DRUGS (12)
  1. DIGOXIN [Concomitant]
  2. LISINOPRIL [Concomitant]
  3. TRACLEER [Suspect]
     Indication: PULMONARY ARTERIAL HYPERTENSION
     Dosage: 125 MG, BID
     Route: 048
     Dates: start: 20090101
  4. CINACALCET [Concomitant]
  5. MAGNESIUM CHLORIDE [Concomitant]
  6. ALLOPURINOL [Concomitant]
  7. COUMADIN [Concomitant]
  8. FUROSEMIDE [Concomitant]
  9. ZOLPIDEM [Concomitant]
  10. PHENOBARBITAL TAB [Concomitant]
  11. AMIODARONE HCL [Concomitant]
  12. DOCUSATE [Concomitant]

REACTIONS (2)
  - ATRIAL FIBRILLATION [None]
  - CARDIOVERSION [None]
